FAERS Safety Report 6372189-9 (Version None)
Quarter: 2009Q3

REPORT INFORMATION
  Report Type: 
  Country: None (occurrence: None)
  Receive Date: 20090924
  Receipt Date: 20090915
  Transmission Date: 20100115
  Serious: Yes (Other)
  Sender: FDA-Public Use
  Company Number: US-JNJCH-2009024876

PATIENT
  Age: 40 Year
  Sex: Female
  Weight: 52.2 kg

DRUGS (2)
  1. LISTERINE ANTISEPTIC MOUTHWASH [Suspect]
     Indication: ALCOHOL USE
     Dosage: TEXT:UNSPECIFIED
     Route: 048
  2. DRUG, UNSPECIFIED [Concomitant]
     Indication: DRUG USE FOR UNKNOWN INDICATION
     Dosage: TEXT:UNSPECIFIED
     Route: 065

REACTIONS (2)
  - DRUG ABUSE [None]
  - INCORRECT ROUTE OF DRUG ADMINISTRATION [None]
